FAERS Safety Report 5138360-9 (Version None)
Quarter: 2006Q4

REPORT INFORMATION
  Report Type: 
  Country: None (occurrence: None)
  Receive Date: 20061025
  Receipt Date: 20061025
  Transmission Date: 20070319
  Serious: Yes (Other)
  Sender: FDA-Public Use
  Company Number: None

PATIENT
  Age: 64 Year
  Sex: Female
  Weight: 79.3 kg

DRUGS (9)
  1. ISOVUE-128 [Suspect]
     Indication: COMPUTERISED TOMOGRAM
     Dosage: 130 ML IV  2ML/SC
     Route: 042
  2. GABAPENTIN [Concomitant]
  3. NEXIUM [Concomitant]
  4. NIFEDIPINE [Concomitant]
  5. PRAVACHOL [Concomitant]
  6. ^AIRBORNE^ MULTIVITAMIN [Concomitant]
  7. CELEBREX [Concomitant]
  8. CELEXA [Concomitant]
  9. AMBIEN [Concomitant]

REACTIONS (4)
  - FLUSHING [None]
  - HYPOTENSION [None]
  - OXYGEN SATURATION DECREASED [None]
  - PRURITUS [None]
